FAERS Safety Report 7401038-2 (Version None)
Quarter: 2011Q2

REPORT INFORMATION
  Report Type: 
  Country: None (occurrence: None)
  Receive Date: 20110407
  Receipt Date: 20110406
  Transmission Date: 20111010
  Serious: Yes (Death)
  Sender: FDA-Public Use
  Company Number: US-AMGEN-USASP2010007967

PATIENT
  Age: 83 Year
  Sex: Male

DRUGS (2)
  1. NPLATE [Suspect]
     Indication: IDIOPATHIC THROMBOCYTOPENIC PURPURA
     Dosage: UNK
     Dates: start: 20101020
  2. PREDNISONE [Concomitant]
     Dosage: UNK
     Dates: start: 20080101

REACTIONS (2)
  - MYELODYSPLASTIC SYNDROME [None]
  - THROMBOCYTOPENIA [None]
